FAERS Safety Report 12693722 (Version 1)
Quarter: 2016Q3

REPORT INFORMATION
  Report Type: Spontaneous
  Country: FR (occurrence: FR)
  Receive Date: 20160829
  Receipt Date: 20160829
  Transmission Date: 20161109
  Serious: Yes (Hospitalization)
  Sender: FDA-Public Use
  Company Number: FR-PFIZER INC-2016399394

PATIENT
  Age: 78 Year
  Sex: Female

DRUGS (14)
  1. OMEPRAZOLE. [Concomitant]
     Active Substance: OMEPRAZOLE
     Dosage: UNK
  2. DEPAMIDE [Concomitant]
     Active Substance: VALPROMIDE
     Dosage: UNK
  3. METOJECT [Concomitant]
     Active Substance: METHOTREXATE SODIUM
     Dosage: 15 MG, 1/WEEK
  4. SPECIAFOLDINE [Concomitant]
     Active Substance: FOLIC ACID
     Dosage: UNK
  5. PARACETAMOL [Concomitant]
     Active Substance: ACETAMINOPHEN
     Dosage: UNK
  6. EUPANTOL [Suspect]
     Active Substance: PANTOPRAZOLE SODIUM
     Indication: PROPHYLAXIS AGAINST GASTROINTESTINAL ULCER
     Dosage: UNK
     Route: 048
     Dates: start: 20160326, end: 20160504
  7. COVERSYL /00790702/ [Suspect]
     Active Substance: PERINDOPRIL
     Dosage: 2.5 MG, QD
     Route: 048
     Dates: start: 20160314, end: 20160504
  8. CORTANCYL [Concomitant]
     Active Substance: PREDNISONE
     Dosage: 30 MG, QD
  9. CACIT VITAMINE D3 [Concomitant]
     Active Substance: CALCIUM CARBONATE\CHOLECALCIFEROL
     Dosage: UNK
  10. NORSET [Concomitant]
     Active Substance: MIRTAZAPINE
     Dosage: UNK
  11. EFFEXOR [Concomitant]
     Active Substance: VENLAFAXINE HYDROCHLORIDE
     Dosage: UNK
  12. TAZOCILLINE [Suspect]
     Active Substance: PIPERACILLIN SODIUM\TAZOBACTAM SODIUM
     Indication: SEPTIC SHOCK
     Dosage: 4 G, TID
     Route: 065
     Dates: start: 20160326, end: 20160428
  13. TARGOCID [Suspect]
     Active Substance: TEICOPLANIN
     Indication: SEPTIC SHOCK
     Dosage: 200 MG, QD
     Route: 042
     Dates: start: 20160330, end: 20160428
  14. IXPRIM [Concomitant]
     Active Substance: ACETAMINOPHEN\TRAMADOL HYDROCHLORIDE
     Dosage: UNK

REACTIONS (1)
  - Drug reaction with eosinophilia and systemic symptoms [Recovered/Resolved]

NARRATIVE: CASE EVENT DATE: 20160503
